FAERS Safety Report 4331478-X (Version None)
Quarter: 2004Q1

REPORT INFORMATION
  Report Type: 
  Country: None (occurrence: None)
  Receive Date: 20040329
  Receipt Date: 20040317
  Transmission Date: 20041129
  Serious: Yes (Other)
  Sender: FDA-Public Use
  Company Number: US-JNJFOC-20040204237

PATIENT
  Age: 42 Year
  Sex: Female
  Weight: 68.0396 kg

DRUGS (5)
  1. TOPAMAX [Suspect]
     Indication: DIZZINESS
     Dosage: SEE IMAGE
     Route: 048
     Dates: start: 20040204, end: 20040211
  2. TOPAMAX [Suspect]
     Indication: MIGRAINE
     Dosage: SEE IMAGE
     Route: 048
     Dates: start: 20040204, end: 20040211
  3. TOPAMAX [Suspect]
     Indication: DIZZINESS
     Dosage: SEE IMAGE
     Route: 048
     Dates: start: 20040211
  4. TOPAMAX [Suspect]
     Indication: MIGRAINE
     Dosage: SEE IMAGE
     Route: 048
     Dates: start: 20040211
  5. PAXIL (TABLETS) PAROXETINE HYDROCHLORIDE) TABLETS [Concomitant]

REACTIONS (5)
  - HEADACHE [None]
  - MYDRIASIS [None]
  - NAUSEA [None]
  - UVEITIS [None]
  - VISION BLURRED [None]
